FAERS Safety Report 11249584 (Version 6)
Quarter: 2015Q3

REPORT INFORMATION
  Report Type: Spontaneous
  Country: JP (occurrence: JP)
  Receive Date: 20150708
  Receipt Date: 20150930
  Transmission Date: 20151125
  Serious: Yes (Death, Other)
  Sender: FDA-Public Use
  Company Number: JP-ASTRAZENECA-2015SE64793

PATIENT
  Age: 90 Year
  Sex: Male
  Weight: 54 kg

DRUGS (11)
  1. ARYTHMET [Concomitant]
     Indication: HYPERURICAEMIA
     Dosage: THE START DATE WAS BEFORE 2011, 100 MG EVERY DAY
     Route: 048
     Dates: end: 20150622
  2. SAMSCA [Concomitant]
     Active Substance: TOLVAPTAN
     Indication: CARDIAC FAILURE CHRONIC
     Route: 048
     Dates: start: 20150402, end: 20150622
  3. DIART [Concomitant]
     Active Substance: AZOSEMIDE
     Indication: CARDIAC FAILURE CHRONIC
     Route: 048
     Dates: start: 20150212, end: 20150622
  4. SAMSCA [Concomitant]
     Active Substance: TOLVAPTAN
     Indication: CARDIAC FAILURE CHRONIC
     Route: 048
     Dates: start: 20150319, end: 20150401
  5. NIFEDIPINE. [Concomitant]
     Active Substance: NIFEDIPINE
     Indication: HYPERTENSION
     Route: 048
     Dates: start: 20150213, end: 20150622
  6. PLAVIX [Concomitant]
     Active Substance: CLOPIDOGREL BISULFATE
     Indication: CEREBRAL INFARCTION
     Route: 048
     Dates: start: 20121201, end: 20150622
  7. KALIMATE [Concomitant]
     Active Substance: CALCIUM POLYSTYRENE SULFONATE
     Indication: HYPERKALAEMIA
     Route: 048
     Dates: start: 20120702, end: 20150622
  8. FORXIGA [Suspect]
     Active Substance: DAPAGLIFLOZIN
     Indication: TYPE 2 DIABETES MELLITUS
     Route: 048
     Dates: start: 20150528, end: 20150622
  9. CADUET NO.3 [Concomitant]
     Indication: HYPERTENSION
     Dosage: DOSE UNKNOWN, EVERY DAY
     Route: 048
     Dates: start: 20130801, end: 20150622
  10. LASIX [Concomitant]
     Active Substance: FUROSEMIDE
     Indication: CARDIAC FAILURE CHRONIC
     Route: 048
     Dates: start: 20150212, end: 20150622
  11. URITOS OD [Concomitant]
     Indication: POLLAKIURIA
     Route: 048
     Dates: start: 20140203, end: 20150622

REACTIONS (3)
  - Cerebral infarction [Fatal]
  - Dehydration [Not Recovered/Not Resolved]
  - Pneumonia [Recovered/Resolved]

NARRATIVE: CASE EVENT DATE: 20150612
